FAERS Safety Report 4727605-2 (Version None)
Quarter: 2005Q3

REPORT INFORMATION
  Report Type: 
  Country: None (occurrence: None)
  Receive Date: 20050728
  Receipt Date: 20050721
  Transmission Date: 20060218
  Serious: Yes (Hospitalization)
  Sender: FDA-Public Use
  Company Number: US-BRISTOL-MYERS SQUIBB COMPANY-13046545

PATIENT
  Age: 76 Year
  Sex: Male

DRUGS (7)
  1. CETUXIMAB [Suspect]
     Indication: NON-SMALL CELL LUNG CANCER
     Route: 042
     Dates: start: 20050614, end: 20050614
  2. CARBOPLATIN [Suspect]
     Indication: NON-SMALL CELL LUNG CANCER
     Route: 042
     Dates: start: 20050621, end: 20050621
  3. PACLITAXEL [Suspect]
     Indication: NON-SMALL CELL LUNG CANCER
     Route: 042
     Dates: start: 20050621, end: 20050621
  4. ASPIRIN [Concomitant]
  5. CIPROFLOXACIN [Concomitant]
     Dates: start: 20050615
  6. M.V.I. [Concomitant]
  7. NORVASC [Concomitant]
     Indication: HYPERTENSION

REACTIONS (1)
  - DEHYDRATION [None]
